FAERS Safety Report 24316309 (Version 1)
Quarter: 2024Q3

REPORT INFORMATION
  Report Type: Spontaneous
  Country: PT (occurrence: PT)
  Receive Date: 20240913
  Receipt Date: 20240913
  Transmission Date: 20241016
  Serious: Yes (Hospitalization, Other)
  Sender: ACCORD
  Company Number: PT-Accord-445974

PATIENT
  Age: 63 Year
  Sex: Male

DRUGS (2)
  1. FLUOROURACIL [Suspect]
     Active Substance: FLUOROURACIL
     Indication: Gastric neoplasm
     Dosage: 1ST CYCLE OF CHEMOTHERAPY
  2. FLUOROURACIL [Suspect]
     Active Substance: FLUOROURACIL
     Indication: Gastric neoplasm
     Dosage: 2ND CYCLE OF CT

REACTIONS (4)
  - Atrial fibrillation [Recovered/Resolved]
  - Electrocardiogram ST segment elevation [Recovered/Resolved]
  - Vasospasm [Recovered/Resolved]
  - Disease recurrence [Unknown]
